FAERS Safety Report 21772052 (Version 1)
Quarter: 2022Q4

REPORT INFORMATION
  Report Type: Spontaneous
  Country: US (occurrence: US)
  Receive Date: 20221223
  Receipt Date: 20221223
  Transmission Date: 20230113
  Serious: Yes (Hospitalization)
  Sender: FDA-Public Use
  Company Number: US-CTI BIOPHARMA-2022US03035

PATIENT

DRUGS (9)
  1. VONJO [Suspect]
     Active Substance: PACRITINIB
     Indication: Myelofibrosis
     Dosage: 200 MG, BID
     Route: 048
     Dates: start: 202206
  2. VONJO [Suspect]
     Active Substance: PACRITINIB
     Dosage: UNK UNK, QD
  3. ASPIRIN [Concomitant]
     Active Substance: ASPIRIN
  4. DRONABINOL [Concomitant]
     Active Substance: DRONABINOL
  5. EZETIMIBE [Concomitant]
     Active Substance: EZETIMIBE
  6. METOPROLOL [Concomitant]
     Active Substance: METOPROLOL
  7. VITAMIN D3 [Concomitant]
     Active Substance: CHOLECALCIFEROL
  8. VALSARTAN [Concomitant]
     Active Substance: VALSARTAN
  9. TYLENOL [Concomitant]
     Active Substance: ACETAMINOPHEN

REACTIONS (1)
  - Myocardial infarction [Unknown]
